FAERS Safety Report 15113393 (Version 2)
Quarter: 2019Q1

REPORT INFORMATION
  Report Type: Spontaneous
  Country: None (occurrence: IN)
  Receive Date: 20180706
  Receipt Date: 20190128
  Transmission Date: 20190417
  Serious: Yes (Hospitalization, Other)
  Sender: FDA-Public Use
  Company Number: IN-CONCORDIA PHARMACEUTICALS INC.-E2B_00013232

PATIENT
  Age: 12 Year
  Sex: Male
  Weight: 24 kg

DRUGS (8)
  1. TACROLIMUS. [Concomitant]
     Active Substance: TACROLIMUS
     Indication: NEPHROTIC SYNDROME
     Dates: start: 201308
  2. VITAMIN D [Concomitant]
     Active Substance: CHOLECALCIFEROL
     Dates: start: 201409
  3. PREDNISOLONE. [Suspect]
     Active Substance: PREDNISOLONE
     Dates: start: 201409
  4. ATORVASTATIN [Concomitant]
     Active Substance: ATORVASTATIN
     Indication: DISEASE RECURRENCE
     Dates: start: 201409
  5. TACROLIMUS. [Concomitant]
     Active Substance: TACROLIMUS
     Dates: start: 201409
  6. PREDNISOLONE. [Suspect]
     Active Substance: PREDNISOLONE
     Indication: NEPHROTIC SYNDROME
  7. CALCIUM [Concomitant]
     Active Substance: CALCIUM
     Dates: start: 201409
  8. PREDNISOLONE. [Suspect]
     Active Substance: PREDNISOLONE
     Dates: start: 2014

REACTIONS (3)
  - Mesenteric vein thrombosis [Recovered/Resolved]
  - Hypercoagulation [Recovered/Resolved]
  - Portal vein thrombosis [Recovered/Resolved]

NARRATIVE: CASE EVENT DATE: 201409
